FAERS Safety Report 14633128 (Version 3)
Quarter: 2018Q2

REPORT INFORMATION
  Report Type: Report from Study
  Country: US (occurrence: US)
  Receive Date: 20180313
  Receipt Date: 20180618
  Transmission Date: 20180711
  Serious: Yes (Hospitalization)
  Sender: FDA-Public Use
  Company Number: US-ACTELION-A-US2017-152995

PATIENT
  Age: 57 Year
  Sex: Female
  Weight: 71.2 kg

DRUGS (3)
  1. REMODULIN [Concomitant]
     Active Substance: TREPROSTINIL
  2. TRACLEER [Suspect]
     Active Substance: BOSENTAN
     Indication: PULMONARY ARTERIAL HYPERTENSION
     Dosage: 125 MG, BID
     Route: 048
  3. WARFARIN [Concomitant]
     Active Substance: WARFARIN

REACTIONS (7)
  - Back pain [Unknown]
  - Contusion [Unknown]
  - Abdominal pain upper [Unknown]
  - Vomiting [Unknown]
  - Oral candidiasis [Unknown]
  - Pneumonia [Unknown]
  - Pyrexia [Unknown]
